FAERS Safety Report 4342581-2 (Version None)
Quarter: 2004Q2

REPORT INFORMATION
  Report Type: 
  Country: None (occurrence: None)
  Receive Date: 20040413
  Receipt Date: 20040401
  Transmission Date: 20050107
  Serious: Yes (Death, Other)
  Sender: FDA-Public Use
  Company Number: 2004207732GB

PATIENT
  Age: 72 Year
  Sex: Male
  Weight: 90 kg

DRUGS (5)
  1. ZYVOX [Suspect]
     Indication: STAPHYLOCOCCAL INFECTION
     Dosage: 600 MG, BID, ORAL
     Route: 048
     Dates: start: 20040218, end: 20040312
  2. GLICLAZIDE (GLICLAZIDE) [Concomitant]
  3. ROSIGLITAZONE MALEATE [Concomitant]
  4. SOTALOL HCL [Concomitant]
  5. FLUCONAZOLE [Concomitant]

REACTIONS (4)
  - COAGULOPATHY [None]
  - HAEMORRHAGE [None]
  - PANCYTOPENIA [None]
  - THROMBOCYTOPENIA [None]
